FAERS Safety Report 13716590 (Version 1)
Quarter: 2017Q3

REPORT INFORMATION
  Report Type: Spontaneous
  Country: JP (occurrence: JP)
  Receive Date: 20170705
  Receipt Date: 20170705
  Transmission Date: 20171127
  Serious: Yes (Other)
  Sender: FDA-Public Use
  Company Number: PHJP2017JP017838

PATIENT
  Age: 61 Year
  Sex: Male

DRUGS (1)
  1. TASIGNA [Suspect]
     Active Substance: NILOTINIB
     Indication: CHRONIC MYELOID LEUKAEMIA
     Dosage: 800 MG, QD
     Route: 048
     Dates: start: 201510, end: 20170121

REACTIONS (10)
  - Scrotal oedema [Recovering/Resolving]
  - Pleural effusion [Recovering/Resolving]
  - Scrotal pain [Unknown]
  - Diarrhoea [Recovering/Resolving]
  - Scrotal swelling [Unknown]
  - Oedema [Recovering/Resolving]
  - Fluid retention [Recovering/Resolving]
  - Lymphoedema [Recovering/Resolving]
  - Localised oedema [Recovering/Resolving]
  - Dyspnoea [Unknown]
